FAERS Safety Report 14318008 (Version 7)
Quarter: 2018Q3

REPORT INFORMATION
  Report Type: Spontaneous
  Country: BE (occurrence: BE)
  Receive Date: 20171222
  Receipt Date: 20180731
  Transmission Date: 20181010
  Serious: Yes (Hospitalization, Other)
  Sender: FDA-Public Use
  Company Number: BE-PFIZER INC-2017540568

PATIENT
  Age: 62 Year
  Sex: Female

DRUGS (11)
  1. NEXIUM CONTROL [Suspect]
     Active Substance: ESOMEPRAZOLE MAGNESIUM
     Dosage: 60 MG DAILY (40 MG IN THE MORNING AND 20 MG IN THE EVENING)
     Route: 048
  2. PANTOZOL [Suspect]
     Active Substance: PANTOPRAZOLE SODIUM
     Dosage: UNK
     Route: 065
  3. NEXIUM CONTROL [Suspect]
     Active Substance: ESOMEPRAZOLE MAGNESIUM
     Indication: GASTROOESOPHAGEAL REFLUX DISEASE
     Dosage: UNK
     Route: 048
  4. NEXIUM CONTROL [Suspect]
     Active Substance: ESOMEPRAZOLE MAGNESIUM
     Indication: ULCER
     Dosage: 40 MG, BID
     Route: 048
     Dates: start: 201706
  5. NEXIUM CONTROL [Suspect]
     Active Substance: ESOMEPRAZOLE MAGNESIUM
     Dosage: 20 MG, BID
     Route: 065
     Dates: start: 201707
  6. NEXIAM [Suspect]
     Active Substance: ESOMEPRAZOLE
     Indication: GASTROOESOPHAGEAL REFLUX DISEASE
     Dosage: 40 MG, BID
     Route: 048
     Dates: start: 201706
  7. NEXIAM [Suspect]
     Active Substance: ESOMEPRAZOLE
     Dosage: 20 MG, BID
     Route: 048
  8. NEXIUM CONTROL [Suspect]
     Active Substance: ESOMEPRAZOLE MAGNESIUM
     Dosage: 60 MG, 2X/DAY
     Route: 048
  9. NEXIUM CONTROL [Suspect]
     Active Substance: ESOMEPRAZOLE MAGNESIUM
     Dosage: 20 MG, 2X/DAY (MORNING AND EVENING)
     Route: 048
     Dates: start: 201706
  10. NEXIAM [Suspect]
     Active Substance: ESOMEPRAZOLE
     Indication: ULCER
     Dosage: 60 MG, 1X/DAY
     Route: 048
  11. NEXIUM CONTROL [Suspect]
     Active Substance: ESOMEPRAZOLE MAGNESIUM
     Dosage: 40 MG, BID
     Route: 065
     Dates: start: 201707

REACTIONS (9)
  - Incorrect dose administered [Unknown]
  - Vomiting [Unknown]
  - Hypersensitivity [Unknown]
  - Dyspepsia [Unknown]
  - Aerophagia [Unknown]
  - Nausea [Unknown]
  - Overdose [Unknown]
  - Pharyngeal oedema [Unknown]
  - Dysphagia [Unknown]

NARRATIVE: CASE EVENT DATE: 201706
